FAERS Safety Report 9527271 (Version 1)
Quarter: 2013Q3

REPORT INFORMATION
  Report Type: Spontaneous
  Country: BR (occurrence: BR)
  Receive Date: 20130917
  Receipt Date: 20130917
  Transmission Date: 20140515
  Serious: Yes (Hospitalization)
  Sender: FDA-Public Use
  Company Number: BR-BIOGENIDEC-2013BI085425

PATIENT
  Age: 28 Year
  Sex: Female

DRUGS (2)
  1. TYSABRI [Suspect]
     Indication: MULTIPLE SCLEROSIS
     Route: 042
     Dates: start: 20120320, end: 201212
  2. EXODUS [Concomitant]
     Indication: DEPRESSION

REACTIONS (2)
  - Musculoskeletal disorder [Not Recovered/Not Resolved]
  - Burning sensation [Not Recovered/Not Resolved]
